FAERS Safety Report 16504607 (Version 1)
Quarter: 2019Q3

REPORT INFORMATION
  Report Type: Spontaneous
  Country: FR (occurrence: FR)
  Receive Date: 20190701
  Receipt Date: 20190701
  Transmission Date: 20191004
  Serious: Yes (Other)
  Sender: FDA-Public Use
  Company Number: FR-MYLANLABS-2019M1060057

PATIENT
  Age: 3 Month
  Sex: Female
  Weight: 5.8 kg

DRUGS (1)
  1. DEXAMETHASONE MYLAN [Suspect]
     Active Substance: DEXAMETHASONE
     Indication: OROPHARYNGEAL SURGERY
     Dosage: 3 PRISES
     Route: 042
     Dates: start: 20181128, end: 20181128

REACTIONS (3)
  - Product prescribing error [Recovered/Resolved]
  - Medication error [Recovered/Resolved]
  - Overdose [Recovered/Resolved]

NARRATIVE: CASE EVENT DATE: 20181128
